FAERS Safety Report 6325165-6 (Version None)
Quarter: 2009Q3

REPORT INFORMATION
  Report Type: 
  Country: None (occurrence: None)
  Receive Date: 20090824
  Receipt Date: 20090819
  Transmission Date: 20100115
  Serious: Yes (Hospitalization, Other)
  Sender: FDA-Public Use
  Company Number: PHHY2008JP25317

PATIENT
  Age: 38 Year
  Sex: Male

DRUGS (10)
  1. DIOVAN [Suspect]
     Indication: HYPERTENSION
     Dosage: UNK
     Route: 048
     Dates: start: 20040101, end: 20080816
  2. DIOVAN [Suspect]
     Dosage: UNK
     Route: 048
     Dates: start: 20080911, end: 20080912
  3. ALOSENN [Concomitant]
     Dosage: 1.5 MG
     Route: 048
  4. PANALDINE [Concomitant]
     Dosage: 100 MG
     Route: 048
  5. OMEPRAL [Concomitant]
     Dosage: 20 MG
     Route: 048
  6. CALCIUM CARBONATE [Concomitant]
     Dosage: 1500 MG
     Route: 048
  7. AMLODIN [Concomitant]
     Dosage: 10 MG
     Route: 048
  8. ARTIST [Concomitant]
     Dosage: 10 MG
     Route: 048
     Dates: end: 20080601
  9. ATARAX [Concomitant]
     Dosage: 25 MG
  10. DIALYSIS [Concomitant]

REACTIONS (2)
  - DISCOMFORT [None]
  - HYPOGLYCAEMIA [None]
